FAERS Safety Report 4988443-9 (Version None)
Quarter: 2006Q2

REPORT INFORMATION
  Report Type: 
  Country: None (occurrence: None)
  Receive Date: 20060502
  Receipt Date: 20060228
  Transmission Date: 20061013
  Serious: Yes (Death, Hospitalization, Disabling)
  Sender: FDA-Public Use
  Company Number: PHHO2006JP03578

PATIENT
  Age: 58 Year
  Sex: Male

DRUGS (8)
  1. IMURAN [Concomitant]
     Indication: LUNG TRANSPLANT
     Dosage: 100 MG/DAILY
     Dates: start: 20050823, end: 20050830
  2. IMURAN [Concomitant]
     Dosage: 100 MG/DAILY
     Dates: start: 20050823, end: 20050830
  3. NEORAL [Suspect]
     Indication: LUNG TRANSPLANT
     Dosage: 400 MG/DAILY
     Route: 048
     Dates: start: 20050929, end: 20051009
  4. NEORAL [Suspect]
     Dosage: 400 MG/DAILY
     Route: 048
     Dates: start: 20051020, end: 20051021
  5. SANDIMMUNE [Suspect]
     Indication: LUNG TRANSPLANT
     Dosage: 140MG/DAILY
     Route: 042
     Dates: start: 20050823, end: 20050928
  6. SANDIMMUNE [Suspect]
     Dosage: 120 MG/DAILY
     Route: 042
     Dates: start: 20051022, end: 20051102
  7. PROGRAF [Suspect]
     Indication: LUNG TRANSPLANT
     Dosage: 9.2 MG/DAILY
     Route: 048
     Dates: start: 20051010, end: 20051019
  8. CELLCEPT [Concomitant]
     Indication: LUNG TRANSPLANT
     Dosage: UNK, UNK
     Route: 048
     Dates: start: 20050830

REACTIONS (14)
  - ANAEMIA [None]
  - BLOOD BILIRUBIN INCREASED [None]
  - DEPRESSED LEVEL OF CONSCIOUSNESS [None]
  - HAEMOLYTIC ANAEMIA [None]
  - INFECTION [None]
  - LEUKOENCEPHALOPATHY [None]
  - MULTI-ORGAN FAILURE [None]
  - NEPHROPATHY TOXIC [None]
  - RENAL DISORDER [None]
  - SEPSIS [None]
  - SURGERY [None]
  - THROMBOCYTOPENIA [None]
  - THROMBOTIC MICROANGIOPATHY [None]
  - TOXIC INDUCED ENCEPHALOPATHY [None]
